FAERS Safety Report 6104115-1 (Version None)
Quarter: 2009Q1

REPORT INFORMATION
  Report Type: 
  Country: None (occurrence: None)
  Receive Date: 20090305
  Receipt Date: 20090224
  Transmission Date: 20090719
  Serious: Yes (Hospitalization)
  Sender: FDA-Public Use
  Company Number: GB-TEVA-186139ISR

PATIENT
  Age: 56 Year
  Sex: Male

DRUGS (2)
  1. FUROSEMIDE [Suspect]
     Route: 048
     Dates: start: 20090113, end: 20090122
  2. RAMIPRIL [Suspect]
     Dates: start: 20090113, end: 20090122

REACTIONS (1)
  - RENAL FAILURE ACUTE [None]
